FAERS Safety Report 7680367-1 (Version None)
Quarter: 2011Q3

REPORT INFORMATION
  Report Type: 
  Country: None (occurrence: None)
  Receive Date: 20110812
  Receipt Date: 20110802
  Transmission Date: 20111222
  Serious: Yes (Other)
  Sender: FDA-Public Use
  Company Number: US-VIIV HEALTHCARE LIMITED-B0738517A

PATIENT
  Age: 39 Year
  Sex: Male

DRUGS (5)
  1. RITONAVIR [Suspect]
  2. NEVIRAPINE [Suspect]
     Indication: HIV INFECTION
  3. LAMIVUDINE [Suspect]
     Indication: HIV INFECTION
     Route: 065
  4. ZIDOVUDINE [Suspect]
     Indication: HIV INFECTION
     Route: 065
  5. LOPINAVIR [Suspect]

REACTIONS (3)
  - HERPES SIMPLEX [None]
  - IMMUNE RECONSTITUTION SYNDROME [None]
  - SCROTAL ULCER [None]
